FAERS Safety Report 21941324 (Version 1)
Quarter: 2023Q1

REPORT INFORMATION
  Report Type: Report from Study
  Country: US (occurrence: US)
  Receive Date: 20230202
  Receipt Date: 20230202
  Transmission Date: 20230417
  Serious: No
  Sender: FDA-Public Use
  Company Number: US-EXELIXIS-CABO-22054049

PATIENT
  Age: 69 Year
  Sex: Female

DRUGS (21)
  1. CABOMETYX [Suspect]
     Active Substance: CABOZANTINIB S-MALATE
     Indication: Adrenal gland cancer
     Dosage: 40 MG, QD
     Dates: start: 20220713
  2. ZOFRAN [Concomitant]
     Active Substance: ONDANSETRON HYDROCHLORIDE
     Dosage: UNK
  3. OSILODROSTAT [Concomitant]
     Active Substance: OSILODROSTAT
     Dosage: UNK
  4. MULTIVITAMIN ADULT PRO [Concomitant]
     Dosage: UNK
  5. AMLODIPINE [Concomitant]
     Active Substance: AMLODIPINE BESYLATE
     Dosage: UNK
  6. MAGNESIUM OXIDE [Concomitant]
     Active Substance: MAGNESIUM OXIDE
     Dosage: UNK
  7. POTASSIUM CHLORIDE [Concomitant]
     Active Substance: POTASSIUM CHLORIDE
     Dosage: UNK
  8. LEVOTHYROXINE [Concomitant]
     Active Substance: LEVOTHYROXINE
     Dosage: UNK
  9. LISINOPRIL [Concomitant]
     Active Substance: LISINOPRIL
     Dosage: UNK
  10. SPIRONOLACTONE [Concomitant]
     Active Substance: SPIRONOLACTONE
     Dosage: UNK
  11. ATENOLOL [Concomitant]
     Active Substance: ATENOLOL
     Dosage: UNK
  12. ZINC [Concomitant]
     Active Substance: ZINC
     Dosage: UNK
  13. VITAMIN D3 [Concomitant]
     Active Substance: CHOLECALCIFEROL
     Dosage: UNK
  14. FISH OIL [Concomitant]
     Active Substance: FISH OIL
     Dosage: UNK
  15. VITAMIN C [Concomitant]
     Active Substance: ASCORBIC ACID
     Dosage: UNK
  16. CRANBERRY [Concomitant]
     Active Substance: CRANBERRY
     Dosage: UNK
  17. CLONIDINE [Concomitant]
     Active Substance: CLONIDINE
     Dosage: UNK
  18. SENNA [Concomitant]
     Active Substance: SENNA LEAF\SENNOSIDES\SENNOSIDES A AND B
     Dosage: UNK
  19. IMODIUM [Concomitant]
     Active Substance: LOPERAMIDE HYDROCHLORIDE
     Dosage: UNK
  20. ROBITUSSIN DM [Concomitant]
     Active Substance: DEXTROMETHORPHAN HYDROBROMIDE\GUAIFENESIN
     Dosage: UNK
  21. VITAMIN E [Concomitant]
     Active Substance: .ALPHA.-TOCOPHEROL
     Dosage: UNK

REACTIONS (6)
  - Cushing^s syndrome [Unknown]
  - Blood pressure systolic increased [Recovering/Resolving]
  - Diarrhoea [Recovered/Resolved]
  - SARS-CoV-2 test positive [Recovered/Resolved]
  - Contusion [Unknown]
  - Off label use [Unknown]

NARRATIVE: CASE EVENT DATE: 20220701
